FAERS Safety Report 6483538-5 (Version None)
Quarter: 2009Q4

REPORT INFORMATION
  Report Type: 
  Country: None (occurrence: None)
  Receive Date: 20091209
  Receipt Date: 20091201
  Transmission Date: 20100525
  Serious: Yes (Hospitalization)
  Sender: FDA-Public Use
  Company Number: SK-ROCHE-672237

PATIENT

DRUGS (5)
  1. BEVACIZUMAB [Suspect]
     Dosage: FORM: INFUSION
     Route: 065
     Dates: start: 20091119
  2. CAMPTOSAR [Concomitant]
     Dosage: DRUG AS CAMPTO INF (IRINOTECANUM);FORM: INFUSION
     Route: 042
     Dates: start: 20091119
  3. FLUOROURACIL [Concomitant]
     Dosage: DRUG AS 5-FU INF;FORM: INFUSION
     Route: 042
     Dates: start: 20091119
  4. MONOSAN [Concomitant]
     Dosage: DRUG AS MONOSAN TBL (ISOSORBID MONONITRATUM), FREQUENCY AS 1 TBL DAILY
     Route: 048
     Dates: start: 20050101
  5. ENAP [Concomitant]
     Dosage: DRUG AS ENAP TBL (ENALAPRILUM) AND FREQUENCY AS 1 TBL DAILY
     Route: 048
     Dates: start: 20050101

REACTIONS (1)
  - CEREBELLAR SYNDROME [None]
